FAERS Safety Report 10064132 (Version 2)
Quarter: 2014Q2

REPORT INFORMATION
  Report Type: Report from Study
  Country: JP (occurrence: JP)
  Receive Date: 20140408
  Receipt Date: 20140606
  Transmission Date: 20141212
  Serious: Yes (Other)
  Sender: FDA-Public Use
  Company Number: JP-ROCHE-1379236

PATIENT
  Age: 54 Year
  Sex: Male
  Weight: 68 kg

DRUGS (9)
  1. ALTEPLASE [Suspect]
     Indication: EMBOLIC STROKE
     Route: 040
     Dates: start: 20121212
  2. EDARAVONE [Suspect]
     Indication: EMBOLIC STROKE
     Route: 041
     Dates: start: 20121212, end: 20121214
  3. AMPICILLIN/SULBACTAM SODIUM [Suspect]
     Indication: PRODUCT USED FOR UNKNOWN INDICATION
     Route: 065
  4. NOVASTAN HI [Concomitant]
     Route: 065
     Dates: start: 20121214, end: 20121220
  5. PRAZAXA [Concomitant]
     Route: 048
     Dates: start: 20121226
  6. PROPOFOL [Concomitant]
     Route: 065
     Dates: start: 20121213, end: 20121213
  7. MUSCURATE [Concomitant]
     Route: 065
     Dates: start: 20121213, end: 20121213
  8. HANP [Concomitant]
     Route: 065
     Dates: start: 20121213, end: 20121214
  9. ELASPOL [Concomitant]
     Route: 065
     Dates: start: 20121214, end: 20121217

REACTIONS (2)
  - Renal impairment [Recovered/Resolved]
  - Pneumonia aspiration [None]
